FAERS Safety Report 26125359 (Version 1)
Quarter: 2025Q4

REPORT INFORMATION
  Report Type: Spontaneous
  Country: US (occurrence: None)
  Receive Date: 20251205
  Receipt Date: 20251205
  Transmission Date: 20260117
  Serious: Yes (Hospitalization)
  Sender: FDA-CTU
  Company Number: None

PATIENT
  Age: 59 Year
  Sex: Female
  Weight: 61.3 kg

DRUGS (3)
  1. CYTARABINE [Suspect]
     Active Substance: CYTARABINE
     Dates: end: 20251121
  2. METHOTREXATE [Suspect]
     Active Substance: METHOTREXATE
     Dates: end: 20251119
  3. PONATINIB HYDROCHLORIDE [Suspect]
     Active Substance: PONATINIB HYDROCHLORIDE
     Dosage: OTHER FREQUENCY : TOTAL DOSE ADMINISTERED FROM 11.19 TO 11.28 (ONCE THE PATIENT IS DISCHARGED) DUE TO ELEVATED ALT. ;?
     Dates: end: 20251120

REACTIONS (6)
  - Pyrexia [None]
  - Injection site swelling [None]
  - Injection site pain [None]
  - Injection site infection [None]
  - Deep vein thrombosis [None]
  - Complication associated with device [None]

NARRATIVE: CASE EVENT DATE: 20251120
